FAERS Safety Report 12098602 (Version 1)
Quarter: 2016Q1

REPORT INFORMATION
  Report Type: Spontaneous
  Country: US (occurrence: US)
  Receive Date: 20160222
  Receipt Date: 20160222
  Transmission Date: 20160526
  Serious: Yes (Death, Hospitalization, Other)
  Sender: FDA-Public Use
  Company Number: US-ZYDUS-010307

PATIENT
  Age: 51 Year
  Sex: Male

DRUGS (4)
  1. GANCICLOVIR. [Concomitant]
     Active Substance: GANCICLOVIR
     Indication: PRODUCT USED FOR UNKNOWN INDICATION
     Dosage: 400 MG, TWICE DAILY
     Route: 042
  2. POSACONAZOLE [Concomitant]
     Active Substance: POSACONAZOLE
     Indication: ANTIFUNGAL PROPHYLAXIS
     Dosage: 100 MG THREE TIMES PER DAY
  3. CIPROFLOXACIN. [Concomitant]
     Active Substance: CIPROFLOXACIN
     Indication: PRODUCT USED FOR UNKNOWN INDICATION
     Dosage: 500 MG/DAY
  4. SIROLIMUS. [Suspect]
     Active Substance: SIROLIMUS
     Indication: PROPHYLAXIS AGAINST GRAFT VERSUS HOST DISEASE
     Dosage: 4 MG FOLLOWED BY 2 MG/DAY, TITRATED TO 1 MG/DAY, FINALLY DISCONTINUED.

REACTIONS (10)
  - Liver disorder [Fatal]
  - Hepatitis B [Fatal]
  - Venoocclusive disease [Fatal]
  - Hepatic encephalopathy [Fatal]
  - Atrial fibrillation [Fatal]
  - Hypotension [Fatal]
  - Drug-induced liver injury [Fatal]
  - Hepatorenal syndrome [Fatal]
  - Multiple organ dysfunction syndrome [Fatal]
  - Acute kidney injury [Fatal]
